FAERS Safety Report 7226406-3 (Version None)
Quarter: 2011Q1

REPORT INFORMATION
  Report Type: 
  Country: None (occurrence: None)
  Receive Date: 20110110
  Receipt Date: 20110110
  Transmission Date: 20110831
  Serious: No
  Sender: FDA-Public Use
  Company Number: None

PATIENT
  Sex: Female
  Weight: 65.7716 kg

DRUGS (1)
  1. ACETAMINOPHEN W/ PROPOXYPHENE HCL [Suspect]
     Indication: PAIN
     Dosage: 1 TABLET EVERY 6 HOURS PO
     Route: 048
     Dates: start: 20100929, end: 20101102

REACTIONS (3)
  - DIZZINESS [None]
  - FEELING DRUNK [None]
  - PRODUCT QUALITY ISSUE [None]
